FAERS Safety Report 9511180 (Version 1)
Quarter: 2013Q1

REPORT INFORMATION
  Report Type: Spontaneous
  Country: US (occurrence: None)
  Receive Date: 20130305
  Receipt Date: 20130305
  Transmission Date: 20140127
  Serious: Yes (Hospitalization)
  Sender: FDA-Public Use
  Company Number: 163-21880-11102084

PATIENT
  Age: 74 Year
  Sex: Male

DRUGS (4)
  1. REVLIMID (LENALIDOMIDE) (25 MILLIGRAM, CAPSULES) [Suspect]
     Indication: PLASMA CELL MYELOMA
     Dates: start: 20111009
  2. DEXAMETHASONE(DEXAMETHASONE)(UNKNOWN) [Concomitant]
  3. TERAZOSIN HCL(TERAZOSIN HYDROCHLORIDE)(UNKNOWN) [Concomitant]
  4. GLIPIZIDE(GLIPIZIDE)(UNKNOWN) [Concomitant]

REACTIONS (1)
  - White blood cell count decreased [None]
